FAERS Safety Report 18524986 (Version 1)
Quarter: 2020Q4

REPORT INFORMATION
  Report Type: Spontaneous
  Country: US (occurrence: US)
  Receive Date: 20201119
  Receipt Date: 20201119
  Transmission Date: 20210114
  Serious: Yes (Disabling, Other)
  Sender: FDA-Public Use
  Company Number: US-PFIZER INC-2020452130

PATIENT
  Age: 63 Year
  Sex: Female
  Weight: 58.97 kg

DRUGS (2)
  1. CELEBREX [Suspect]
     Active Substance: CELECOXIB
     Indication: RHEUMATOID ARTHRITIS
     Dosage: 200 MG, 2X/DAY(200MG CAPSULE, 1 CAPSULE MORNING AND NIGHT BY MOUTH)
     Route: 048
  2. CELEBREX [Suspect]
     Active Substance: CELECOXIB
     Indication: PAIN

REACTIONS (4)
  - Spinal stenosis [Unknown]
  - Condition aggravated [Unknown]
  - Crohn^s disease [Unknown]
  - Rheumatoid arthritis [Unknown]
